FAERS Safety Report 10149736 (Version 1)
Quarter: 2014Q2

REPORT INFORMATION
  Report Type: Spontaneous
  Country: JP (occurrence: JP)
  Receive Date: 20140502
  Receipt Date: 20140502
  Transmission Date: 20141212
  Serious: Yes (Hospitalization)
  Sender: FDA-Public Use
  Company Number: JP-SA-2014SA056973

PATIENT
  Age: 76 Year
  Sex: Female

DRUGS (8)
  1. MYSLEE [Suspect]
     Indication: SLEEP DISORDER
     Route: 048
     Dates: start: 2013
  2. BETANIS [Suspect]
     Indication: HYPERTONIC BLADDER
     Route: 048
     Dates: start: 201401
  3. HARNAL [Suspect]
     Indication: NEUROGENIC BLADDER
     Route: 048
     Dates: start: 201401
  4. EBRANTIL [Suspect]
     Indication: PRODUCT USED FOR UNKNOWN INDICATION
     Dosage: FORM:MODIFIEDE RELEASE CAPSULE HARD
     Route: 048
     Dates: start: 201401, end: 20140328
  5. NEXIUM [Suspect]
     Indication: PRODUCT USED FOR UNKNOWN INDICATION
     Route: 048
     Dates: start: 2013
  6. OLMETEC [Suspect]
     Indication: PRODUCT USED FOR UNKNOWN INDICATION
     Route: 048
     Dates: start: 2013
  7. SIMVASTATIN [Suspect]
     Indication: PRODUCT USED FOR UNKNOWN INDICATION
     Route: 048
     Dates: start: 2013
  8. PLETAAL [Suspect]
     Indication: PRODUCT USED FOR UNKNOWN INDICATION
     Dosage: FORM :ORODISPERSIBLE TABLET
     Route: 048
     Dates: start: 2013

REACTIONS (2)
  - Transient ischaemic attack [Recovered/Resolved]
  - Loss of consciousness [Recovered/Resolved]
